FAERS Safety Report 22068863 (Version 1)
Quarter: 2023Q1

REPORT INFORMATION
  Report Type: Spontaneous
  Country: US (occurrence: US)
  Receive Date: 20230307
  Receipt Date: 20230307
  Transmission Date: 20230418
  Serious: No
  Sender: FDA-Public Use
  Company Number: US-AMNEAL PHARMACEUTICALS-2022-AMRX-00083

PATIENT
  Age: 80 Year
  Sex: Male

DRUGS (4)
  1. RYTARY [Suspect]
     Active Substance: CARBIDOPA\LEVODOPA
     Indication: Parkinson^s disease
     Dosage: 48.75/145MG, 3 CAPSULES, QID
     Route: 048
     Dates: start: 20220105, end: 20220113
  2. RYTARY [Suspect]
     Active Substance: CARBIDOPA\LEVODOPA
     Dosage: 48.75/145MG, 2 CAPSULES, QID
     Route: 048
     Dates: start: 2022, end: 2022
  3. RYTARY [Suspect]
     Active Substance: CARBIDOPA\LEVODOPA
     Dosage: 61.25/245, 2 CAPSULES, QID
     Route: 048
     Dates: start: 2022
  4. RYTARY [Suspect]
     Active Substance: CARBIDOPA\LEVODOPA
     Dosage: MIXED RYTARY 48.25/145 MG WITH THE 61. 25/245 MG TOOK 2 EXTRA CAPSULES PER DAY
     Route: 065
     Dates: start: 2022

REACTIONS (1)
  - Hallucination [Unknown]

NARRATIVE: CASE EVENT DATE: 20220101
